FAERS Safety Report 5388610-9 (Version None)
Quarter: 2007Q3

REPORT INFORMATION
  Report Type: 
  Country: None (occurrence: None)
  Receive Date: 20070716
  Receipt Date: 20070711
  Transmission Date: 20080115
  Serious: Yes (Other)
  Sender: FDA-Public Use
  Company Number: US-PFIZER INC-2007056679

PATIENT
  Sex: Female

DRUGS (2)
  1. XANAX [Suspect]
     Indication: ANXIETY
     Dates: start: 20070627, end: 20070629
  2. LEXAPRO [Concomitant]

REACTIONS (7)
  - AGITATION [None]
  - COGNITIVE DISORDER [None]
  - INSOMNIA [None]
  - NERVOUSNESS [None]
  - PANIC REACTION [None]
  - RESTLESSNESS [None]
  - SPEECH DISORDER [None]
